FAERS Safety Report 6568310-X (Version None)
Quarter: 2010Q1

REPORT INFORMATION
  Report Type: 
  Country: None (occurrence: None)
  Receive Date: 20100203
  Receipt Date: 20100126
  Transmission Date: 20100710
  Serious: Yes (Death, Hospitalization)
  Sender: FDA-Public Use
  Company Number: CZ-ELI_LILLY_AND_COMPANY-CZ201001000551

PATIENT
  Sex: Female

DRUGS (5)
  1. FORTEO [Suspect]
     Indication: OSTEOPOROSIS POSTMENOPAUSAL
     Dosage: 20 UG, DAILY (1/D)
     Route: 058
     Dates: start: 20081014, end: 20091201
  2. VITACALCIN [Concomitant]
     Indication: OSTEOPOROSIS
     Dosage: 250 MG, 2/D
     Route: 048
  3. VIGANTOL                           /00318501/ [Concomitant]
     Indication: OSTEOPOROSIS
     Dosage: 2 GTT, DAILY (1/D)
     Route: 048
  4. LUSOPRESS [Concomitant]
     Indication: HYPERTENSION
     Dosage: UNK, UNKNOWN
  5. NIMESIL [Concomitant]
     Indication: MUSCULOSKELETAL PAIN
     Dosage: UNK, UNKNOWN

REACTIONS (8)
  - ACUTE MYELOID LEUKAEMIA [None]
  - ANAEMIA [None]
  - DYSPNOEA [None]
  - LEUKOCYTOSIS [None]
  - RESPIRATORY TRACT INFECTION [None]
  - THROMBOCYTOPENIA [None]
  - THROMBOPHLEBITIS [None]
  - URINARY TRACT INFECTION [None]
